FAERS Safety Report 21653015 (Version 1)
Quarter: 2022Q4

REPORT INFORMATION
  Report Type: Spontaneous
  Country: US (occurrence: US)
  Receive Date: 20221128
  Receipt Date: 20221128
  Transmission Date: 20230113
  Serious: Yes (Other)
  Sender: FDA-Public Use
  Company Number: US-AMERICAN REGENT INC-2022003391

PATIENT
  Sex: Female

DRUGS (2)
  1. CYANOCOBALAMIN [Suspect]
     Active Substance: CYANOCOBALAMIN
     Indication: Vitamin B12 deficiency
     Dosage: UNK
  2. CYANOCOBALAMIN [Suspect]
     Active Substance: CYANOCOBALAMIN
     Indication: Vitamin B12 deficiency
     Dosage: UNK, VITRUVIAS THERAPEUTICS

REACTIONS (6)
  - Ill-defined disorder [Recovering/Resolving]
  - Drug ineffective [Recovering/Resolving]
  - Limb mass [Unknown]
  - Chromaturia [Unknown]
  - Product quality issue [Unknown]
  - Manufacturing issue [Unknown]
